FAERS Safety Report 7492983-0 (Version None)
Quarter: 2011Q2

REPORT INFORMATION
  Report Type: 
  Country: None (occurrence: None)
  Receive Date: 20110520
  Receipt Date: 20110509
  Transmission Date: 20111010
  Serious: Yes (Other)
  Sender: FDA-Public Use
  Company Number: JP-JNJFOC-20110402506

PATIENT
  Age: 56 Year
  Sex: Male

DRUGS (8)
  1. BIPERIDEN HYDROCHLORIDE TAB [Concomitant]
     Indication: PROPHYLAXIS
     Dosage: 2 DF, ONE PER ONE DAY
     Route: 048
  2. DIAZEPAM [Concomitant]
     Route: 048
  3. BENZALIN [Concomitant]
     Route: 048
  4. LENDORMIN [Concomitant]
     Route: 048
  5. WINTERMIN [Concomitant]
     Route: 048
  6. LEVOMEPROMAZINE MALEATE [Concomitant]
     Route: 048
  7. RISPERDAL [Suspect]
     Indication: PRODUCT USED FOR UNKNOWN INDICATION
     Route: 048
  8. ESTAZOLAM [Concomitant]
     Route: 048

REACTIONS (6)
  - DYSARTHRIA [None]
  - INSOMNIA [None]
  - EJACULATION DISORDER [None]
  - CATARACT [None]
  - LIBIDO DECREASED [None]
  - NORMAL TENSION GLAUCOMA [None]
